FAERS Safety Report 9328912 (Version 1)
Quarter: 2013Q2

REPORT INFORMATION
  Report Type: Spontaneous
  Country: FR (occurrence: FR)
  Receive Date: 20130604
  Receipt Date: 20130604
  Transmission Date: 20140414
  Serious: Yes (Hospitalization)
  Sender: FDA-Public Use
  Company Number: FR-JNJFOC-20130522014

PATIENT
  Age: 70 Year
  Sex: Male

DRUGS (9)
  1. REMICADE [Suspect]
     Indication: RHEUMATOID ARTHRITIS
     Route: 042
     Dates: start: 201302, end: 201302
  2. REMICADE [Suspect]
     Indication: RHEUMATOID ARTHRITIS
     Route: 042
     Dates: start: 2001
  3. FUROSEMIDE [Concomitant]
     Route: 065
  4. FORTZAAR [Concomitant]
     Route: 065
  5. METFORMINE [Concomitant]
     Route: 065
  6. ZOCOR [Concomitant]
     Route: 065
  7. COUMADINE [Concomitant]
     Route: 065
  8. LANTUS [Concomitant]
     Route: 065
  9. DISCOTRINE [Concomitant]
     Route: 065

REACTIONS (3)
  - Cardiac failure [Recovered/Resolved with Sequelae]
  - Atrial fibrillation [Recovered/Resolved with Sequelae]
  - Atrioventricular block second degree [Recovered/Resolved with Sequelae]
